FAERS Safety Report 7040245-8 (Version None)
Quarter: 2010Q4

REPORT INFORMATION
  Report Type: 
  Country: None (occurrence: None)
  Receive Date: 20101012
  Receipt Date: 20101006
  Transmission Date: 20110411
  Serious: Yes (Other)
  Sender: FDA-Public Use
  Company Number: US-B.I. PHARMACEUTICALS,INC./RIDGEFIELD-2009-BP-12030BP

PATIENT
  Age: 80 Year
  Sex: Male
  Weight: 104.3 kg

DRUGS (2)
  1. FLOMAX [Suspect]
     Indication: BENIGN PROSTATIC HYPERPLASIA
     Dosage: 0.4 MG
     Route: 048
     Dates: start: 20000101
  2. CELEBREX [Concomitant]
     Indication: ARTHRITIS
     Route: 048

REACTIONS (3)
  - PROSTATE CANCER [None]
  - RASH [None]
  - URTICARIA [None]
